FAERS Safety Report 9160737 (Version 1)
Quarter: 2013Q1

REPORT INFORMATION
  Report Type: Spontaneous
  Country: US (occurrence: US)
  Receive Date: 20130313
  Receipt Date: 20130313
  Transmission Date: 20140127
  Serious: Yes (Other)
  Sender: FDA-Public Use
  Company Number: US-BAYER-2013-028232

PATIENT
  Age: 74 Year
  Sex: Female
  Weight: 63.49 kg

DRUGS (3)
  1. CITRACAL [Suspect]
     Dosage: 1 DF, BID
     Dates: start: 2012
  2. BAYER ASPIRIN REGIMEN ADULT LOW STRENGTH [Suspect]
     Dosage: 1 DF, QD
     Route: 048
  3. ZETIA [Concomitant]

REACTIONS (2)
  - Haemorrhage subcutaneous [Unknown]
  - Constipation [Not Recovered/Not Resolved]
